FAERS Safety Report 17167573 (Version 2)
Quarter: 2020Q1

REPORT INFORMATION
  Report Type: Spontaneous
  Country: JP (occurrence: JP)
  Receive Date: 20191217
  Receipt Date: 20200131
  Transmission Date: 20200409
  Serious: Yes (Hospitalization, Other)
  Sender: FDA-Public Use
  Company Number: JP-GLAXOSMITHKLINE-JP2019JPN228739

PATIENT
  Age: 77 Year
  Sex: Female

DRUGS (5)
  1. CILOSTAZOL TABLETS [Suspect]
     Active Substance: CILOSTAZOL
     Indication: PROPHYLAXIS
     Dosage: 50 MG, BID
     Dates: start: 20190208
  2. CILOSTAZOL TABLETS [Suspect]
     Active Substance: CILOSTAZOL
     Indication: LACUNAR INFARCTION
  3. LAMICTAL [Suspect]
     Active Substance: LAMOTRIGINE
     Indication: EPILEPSY
     Dosage: 25 MG, QD
     Route: 048
     Dates: start: 20190208, end: 20190221
  4. LAMICTAL [Suspect]
     Active Substance: LAMOTRIGINE
     Dosage: 25 MG, BID
     Route: 048
     Dates: start: 20190222, end: 20190308
  5. LAMICTAL [Suspect]
     Active Substance: LAMOTRIGINE
     Dosage: 100 MG, QD
     Route: 048
     Dates: start: 20190309, end: 20190323

REACTIONS (3)
  - Inappropriate schedule of product administration [Unknown]
  - Oculomucocutaneous syndrome [Unknown]
  - Product use issue [Unknown]

NARRATIVE: CASE EVENT DATE: 20190222
